FAERS Safety Report 9158624 (Version 1)
Quarter: 2013Q1

REPORT INFORMATION
  Report Type: Spontaneous
  Country: US (occurrence: US)
  Receive Date: 20130312
  Receipt Date: 20130312
  Transmission Date: 20140127
  Serious: No
  Sender: FDA-Public Use
  Company Number: US-ASTRAZENECA-2013SE13293

PATIENT
  Age: 78 Year
  Sex: Female
  Weight: 64.4 kg

DRUGS (9)
  1. NEXIUM [Suspect]
     Indication: GASTRITIS
     Route: 048
     Dates: end: 20130224
  2. LOPRESSOR [Concomitant]
  3. IMDUR [Concomitant]
  4. IRON [Concomitant]
  5. CALCIUM [Concomitant]
  6. VITAMIN D [Concomitant]
  7. HEART PILLS [Concomitant]
  8. BLOOD THINNERS [Concomitant]
  9. THYROID PILL [Concomitant]

REACTIONS (12)
  - Pruritus generalised [Unknown]
  - Burning sensation [Unknown]
  - Dyspnoea [Unknown]
  - Chest discomfort [Unknown]
  - Asthenia [Unknown]
  - Laryngospasm [Unknown]
  - Malaise [Unknown]
  - Vomiting [Unknown]
  - Eructation [Unknown]
  - Flatulence [Unknown]
  - Insomnia [Unknown]
  - Off label use [Unknown]
